FAERS Safety Report 10064469 (Version 1)
Quarter: 2014Q2

REPORT INFORMATION
  Report Type: Spontaneous
  Country: GB (occurrence: None)
  Receive Date: 20140404
  Receipt Date: 20140404
  Transmission Date: 20141212
  Serious: Yes (Other)
  Sender: FDA-Public Use
  Company Number: AUR-APL-2014-04093

PATIENT
  Age: 61 Year
  Sex: Male
  Weight: 95 kg

DRUGS (3)
  1. SIMVASTATIN [Suspect]
     Indication: HYPERCHOLESTEROLAEMIA
     Route: 048
     Dates: start: 20140110, end: 20140220
  2. AMLODIPINE (AMLODIPINE) [Concomitant]
  3. LISINOPRIL (LISINOPRIL) [Concomitant]
     Indication: HYPERCHOLESTEROLAEMIA
     Route: 048
     Dates: start: 20140110, end: 20140220

REACTIONS (4)
  - Influenza like illness [None]
  - Swelling face [None]
  - Lip swelling [None]
  - Peripheral swelling [None]
